FAERS Safety Report 13467214 (Version 1)
Quarter: 2017Q2

REPORT INFORMATION
  Report Type: Report from Study
  Country: US (occurrence: US)
  Receive Date: 20170421
  Receipt Date: 20170421
  Transmission Date: 20170830
  Serious: Yes (Hospitalization)
  Sender: FDA-Public Use
  Company Number: US-BIOGEN-2017BI00381416

PATIENT
  Age: 60 Year
  Sex: Female

DRUGS (2)
  1. PLEGRIDY [Suspect]
     Active Substance: PEGINTERFERON BETA-1A
     Indication: MULTIPLE SCLEROSIS
     Route: 065
     Dates: start: 20160524
  2. PLEGRIDY [Suspect]
     Active Substance: PEGINTERFERON BETA-1A
     Route: 058
     Dates: start: 20161121

REACTIONS (3)
  - Chronic obstructive pulmonary disease [Unknown]
  - Multiple sclerosis relapse [Not Recovered/Not Resolved]
  - Mental status changes [Unknown]

NARRATIVE: CASE EVENT DATE: 20170327
